FAERS Safety Report 14368168 (Version 1)
Quarter: 2018Q1

REPORT INFORMATION
  Report Type: Spontaneous
  Country: US (occurrence: US)
  Receive Date: 20180109
  Receipt Date: 20180109
  Transmission Date: 20180509
  Serious: Yes (Hospitalization)
  Sender: FDA-Public Use
  Company Number: US-ACELLA PHARMACEUTICALS, LLC-2039745

PATIENT
  Age: 18 Year
  Sex: Female

DRUGS (2)
  1. LOPERAMIDE HCL [Suspect]
     Active Substance: LOPERAMIDE HYDROCHLORIDE
  2. HYDROCODONE BITARTRATE AND CHLORPHENIRAMINE MALEATE [Suspect]
     Active Substance: CHLORPHENIRAMINE MALEATE\HYDROCODONE BITARTRATE

REACTIONS (7)
  - Hepatic enzyme increased [Unknown]
  - Lethargy [Unknown]
  - Somnolence [Unknown]
  - Hypotension [Unknown]
  - Tachycardia [Unknown]
  - Hypertension [Unknown]
  - Electrolyte imbalance [Unknown]
